FAERS Safety Report 24235142 (Version 4)
Quarter: 2024Q3

REPORT INFORMATION
  Report Type: Spontaneous
  Country: US (occurrence: US)
  Receive Date: 20240821
  Receipt Date: 20240915
  Transmission Date: 20241016
  Serious: Yes (Other)
  Sender: JOHNSON AND JOHNSON
  Company Number: US-JNJFOC-20240849465

PATIENT
  Age: 62 Year
  Sex: Male
  Weight: 97.519 kg

DRUGS (1)
  1. OPSUMIT [Suspect]
     Active Substance: MACITENTAN
     Indication: Pulmonary arterial hypertension
     Route: 048
     Dates: start: 20220708

REACTIONS (3)
  - Angina pectoris [Unknown]
  - Product dose omission issue [Unknown]
  - Feeling abnormal [Unknown]
